FAERS Safety Report 7251459-6 (Version None)
Quarter: 2011Q1

REPORT INFORMATION
  Report Type: 
  Country: None (occurrence: None)
  Receive Date: 20110128
  Receipt Date: 20110119
  Transmission Date: 20110831
  Serious: Yes (Hospitalization, Other)
  Sender: FDA-Public Use
  Company Number: PHHY2011US01572

PATIENT
  Sex: Female

DRUGS (7)
  1. FEMARA [Suspect]
     Dosage: 2.5 MG, UNK
     Route: 048
     Dates: start: 20110103
  2. BISPHOSPHONATES [Concomitant]
  3. RECLAST [Concomitant]
  4. CALCIUM [Concomitant]
  5. VITAMIN D [Concomitant]
  6. FEMARA [Suspect]
     Dosage: 2.5 MG, QD
     Route: 048
     Dates: start: 20010101
  7. CHEMOTHERAPEUTICS NOS [Concomitant]

REACTIONS (9)
  - FRACTURE [None]
  - FALL [None]
  - BACK PAIN [None]
  - BLOOD PRESSURE INCREASED [None]
  - INJURY [None]
  - COMPRESSION FRACTURE [None]
  - PAIN [None]
  - COLON ADENOMA [None]
  - COLONIC POLYP [None]
